FAERS Safety Report 4632095-4 (Version None)
Quarter: 2005Q2

REPORT INFORMATION
  Report Type: 
  Country: None (occurrence: None)
  Receive Date: 20050411
  Receipt Date: 20050330
  Transmission Date: 20051028
  Serious: Yes (Disabling, Other)
  Sender: FDA-Public Use
  Company Number: US-AMGEN-US124582

PATIENT
  Sex: Female

DRUGS (4)
  1. ENBREL [Suspect]
     Indication: ANKYLOSING SPONDYLITIS
     Route: 058
     Dates: start: 20001206, end: 20050307
  2. DICLOFENAC SODIUM [Concomitant]
     Route: 048
     Dates: start: 20031123
  3. ASACOL [Concomitant]
     Route: 048
     Dates: start: 19970829
  4. ELAVIL [Concomitant]

REACTIONS (1)
  - DEAFNESS NEUROSENSORY [None]
